FAERS Safety Report 9159657 (Version 1)
Quarter: 2013Q1

REPORT INFORMATION
  Report Type: Spontaneous
  Country: US (occurrence: US)
  Receive Date: 20130313
  Receipt Date: 20130313
  Transmission Date: 20140127
  Serious: Yes (Death, Hospitalization)
  Sender: FDA-Public Use
  Company Number: US-PFIZER INC-2013081913

PATIENT
  Age: 46 Year
  Sex: Male

DRUGS (1)
  1. CAMPTOSAR [Suspect]
     Indication: COLON CANCER
     Dosage: 180 MG, Q 3 WEEKS OFF 1 WEEK
     Dates: start: 20130208

REACTIONS (2)
  - Disease progression [Fatal]
  - Colon cancer [Fatal]
